FAERS Safety Report 5021370-X (Version None)
Quarter: 2006Q2

REPORT INFORMATION
  Report Type: 
  Country: None (occurrence: None)
  Receive Date: 20060608
  Receipt Date: 20060413
  Transmission Date: 20061013
  Serious: No
  Sender: FDA-Public Use
  Company Number: US-BRISTOL-MYERS SQUIBB COMPANY-13346648

PATIENT
  Age: 68 Year
  Sex: Male
  Weight: 91 kg

DRUGS (6)
  1. SINEMET [Suspect]
     Dates: start: 20060306
  2. LITHIUM CARBONATE [Concomitant]
  3. WELLBUTRIN [Concomitant]
  4. AMANTADINE HCL [Concomitant]
  5. MEGACE [Concomitant]
  6. DITROPAN [Concomitant]

REACTIONS (5)
  - DEPRESSION [None]
  - INSOMNIA [None]
  - MALAISE [None]
  - NAUSEA [None]
  - URINARY INCONTINENCE [None]
